FAERS Safety Report 6315000-4 (Version None)
Quarter: 2009Q3

REPORT INFORMATION
  Report Type: 
  Country: None (occurrence: None)
  Receive Date: 20090819
  Receipt Date: 20090813
  Transmission Date: 20100115
  Serious: Yes (Death)
  Sender: FDA-Public Use
  Company Number: B0589274A

PATIENT
  Age: 85 Year
  Sex: Female

DRUGS (3)
  1. FORTAM [Suspect]
     Indication: SEPSIS
     Route: 042
     Dates: start: 20090423
  2. VANCOMYCIN [Suspect]
     Indication: SEPSIS
     Dosage: 1G PER DAY
     Route: 042
     Dates: start: 20090423, end: 20090502
  3. UNKNOWN DRUG [Suspect]
     Indication: DRUG USE FOR UNKNOWN INDICATION
     Dosage: 40MG PER DAY
     Route: 042
     Dates: start: 20090423

REACTIONS (1)
  - THROMBOCYTOPENIA [None]
